FAERS Safety Report 6488084-0 (Version None)
Quarter: 2009Q4

REPORT INFORMATION
  Report Type: 
  Country: None (occurrence: None)
  Receive Date: 20091210
  Receipt Date: 20091130
  Transmission Date: 20100525
  Serious: Yes (Hospitalization)
  Sender: FDA-Public Use
  Company Number: FR-PFIZER INC-2009304839

PATIENT
  Age: 25 Year
  Sex: Female

DRUGS (1)
  1. CHAMPIX [Suspect]

REACTIONS (3)
  - ASPHYXIA [None]
  - DYSPNOEA [None]
  - MALAISE [None]
